FAERS Safety Report 6548270-8 (Version None)
Quarter: 2010Q1

REPORT INFORMATION
  Report Type: 
  Country: None (occurrence: None)
  Receive Date: 20100124
  Receipt Date: 20090407
  Transmission Date: 20100710
  Serious: No
  Sender: FDA-Public Use
  Company Number: US-ALLERGAN-0904760US

PATIENT
  Age: 62 Year
  Sex: Male

DRUGS (9)
  1. RESTASIS [Suspect]
     Indication: DRY EYE
     Dosage: UNK, UNKNOWN
     Route: 047
     Dates: end: 20090401
  2. RESTASIS [Suspect]
     Dosage: UNK, UNKNOWN
     Route: 047
     Dates: start: 20090402, end: 20090406
  3. OPTIVE [Suspect]
     Indication: DRY EYE
     Dosage: UNK, UNKNOWN
     Route: 047
  4. REFRESH P.M. [Suspect]
     Indication: DRY EYE
     Dosage: UNK, UNKNOWN
     Route: 047
  5. TOPROL-XL [Concomitant]
     Dosage: UNK, QD
  6. HYDROCHLOROTHIAZIDE [Concomitant]
     Dosage: 25 MG, QD
  7. SULAR [Concomitant]
     Dosage: 8.5 MG, QD
  8. HYTRIN [Concomitant]
     Dosage: 2 MG, QD
  9. MICARDIS [Concomitant]
     Dosage: 40 MG, QD

REACTIONS (3)
  - DIZZINESS [None]
  - HEAD DISCOMFORT [None]
  - HYPERTENSION [None]
